FAERS Safety Report 16912366 (Version 2)
Quarter: 2019Q4

REPORT INFORMATION
  Report Type: Spontaneous
  Country: FR (occurrence: FR)
  Receive Date: 20191014
  Receipt Date: 20191225
  Transmission Date: 20200122
  Serious: Yes (Hospitalization)
  Sender: FDA-Public Use
  Company Number: FR-TEVA-2019-FR-1120041

PATIENT
  Age: 96 Year
  Sex: Female

DRUGS (9)
  1. FUROSEMIDE. [Concomitant]
     Active Substance: FUROSEMIDE
     Indication: HYPERTENSION
     Dosage: 40 MG,1 DAY
     Route: 048
  2. SERESTA 10 MG, COMPRIME [Concomitant]
     Active Substance: OXAZEPAM
     Dosage: 10 MG
     Route: 048
  3. AMOXICILLINE [Suspect]
     Active Substance: AMOXICILLIN
     Indication: ERYSIPELAS
     Dosage: 3 G, 1 DAY
     Route: 048
     Dates: start: 20190828, end: 20190902
  4. LANSOPRAZOLE. [Concomitant]
     Active Substance: LANSOPRAZOLE
     Dosage: 15 MG,  1DAY
     Route: 048
  5. CIRCADIN 2 MG, COMPRIME A LIBERATION PROLONGEE [Concomitant]
     Active Substance: MELATONIN
     Dosage: 2 MG
     Route: 048
  6. BISOCE 2,5 MG, COMPRIME PELLICULE SECABLE [Concomitant]
     Active Substance: BISOPROLOL FUMARATE
     Indication: CARDIAC FAILURE
     Dosage: 2.5 MG
     Route: 048
  7. DOLIPRANE [Concomitant]
     Active Substance: ACETAMINOPHEN
     Indication: PAIN
     Dosage: 3 GRAM, 1 DAY
     Route: 048
  8. MIRTAZAPINE. [Concomitant]
     Active Substance: MIRTAZAPINE
     Indication: DEPRESSION
     Dosage: 15 MG
     Route: 048
  9. ELIQUIS [Concomitant]
     Active Substance: APIXABAN
     Dosage: 10 MG
     Route: 048

REACTIONS (1)
  - Diarrhoea infectious [Recovering/Resolving]

NARRATIVE: CASE EVENT DATE: 20190902
